FAERS Safety Report 18760655 (Version 1)
Quarter: 2021Q1

REPORT INFORMATION
  Report Type: Spontaneous
  Country: US (occurrence: US)
  Receive Date: 20210119
  Receipt Date: 20210119
  Transmission Date: 20210419
  Serious: No
  Sender: FDA-Public Use
  Company Number: US-BIOMARINAP-US-2020-132877

PATIENT
  Age: 27 Year
  Sex: Male

DRUGS (1)
  1. PALYNZIQ [Suspect]
     Active Substance: PEGVALIASE-PQPZ
     Indication: PHENYLKETONURIA
     Dosage: 50 MILLIGRAM, QD
     Route: 065

REACTIONS (4)
  - Injection site scar [Unknown]
  - Arthralgia [Unknown]
  - Pruritus [Unknown]
  - Off label use [Unknown]
